FAERS Safety Report 9573945 (Version 2)
Quarter: 2013Q4

REPORT INFORMATION
  Report Type: Spontaneous
  Country: PT (occurrence: PT)
  Receive Date: 20131001
  Receipt Date: 20131103
  Transmission Date: 20140711
  Serious: Yes (Other)
  Sender: FDA-Public Use
  Company Number: PT-ELI_LILLY_AND_COMPANY-PT201309008883

PATIENT
  Age: 65 Year
  Sex: Male

DRUGS (3)
  1. CIALIS [Suspect]
     Indication: ERECTILE DYSFUNCTION
     Dosage: 5 MG, QD
     Route: 048
     Dates: start: 201306, end: 201309
  2. CIALIS [Suspect]
     Indication: BENIGN PROSTATIC HYPERPLASIA
  3. METFORMIN [Concomitant]

REACTIONS (1)
  - Thrombosis [Recovering/Resolving]
